FAERS Safety Report 8143431-9 (Version None)
Quarter: 2012Q1

REPORT INFORMATION
  Report Type: 
  Country: None (occurrence: None)
  Receive Date: 20120215
  Receipt Date: 20120215
  Transmission Date: 20120608
  Serious: Yes (Hospitalization)
  Sender: FDA-Public Use
  Company Number: None

PATIENT
  Sex: Female

DRUGS (2)
  1. ZOLINZA [Suspect]
  2. ZOLINZA [Suspect]
     Indication: LYMPHOMA
     Dosage: 400MG QD PO = 047
     Route: 048
     Dates: start: 20111101, end: 20120101

REACTIONS (6)
  - MYOCARDIAL INFARCTION [None]
  - NAUSEA [None]
  - ASTHENIA [None]
  - VOMITING [None]
  - WEIGHT DECREASED [None]
  - ALOPECIA [None]
